FAERS Safety Report 6186219-0 (Version None)
Quarter: 2009Q2

REPORT INFORMATION
  Report Type: 
  Country: None (occurrence: None)
  Receive Date: 20090511
  Receipt Date: 20090429
  Transmission Date: 20091009
  Serious: Yes (Other)
  Sender: FDA-Public Use
  Company Number: PHHY2009HU16379

PATIENT
  Sex: Female
  Weight: 72 kg

DRUGS (1)
  1. FEMARA [Suspect]
     Dosage: 1X1
     Route: 048
     Dates: start: 20081212, end: 20090427

REACTIONS (12)
  - ANOREXIA [None]
  - ASTHENIA [None]
  - BONE PAIN [None]
  - DIZZINESS [None]
  - HYPERHIDROSIS [None]
  - MYALGIA [None]
  - NAUSEA [None]
  - OEDEMA [None]
  - SLEEP DISORDER [None]
  - TEMPERATURE INTOLERANCE [None]
  - VOMITING [None]
  - WEIGHT DECREASED [None]
